FAERS Safety Report 9914687 (Version 1)
Quarter: 2014Q1

REPORT INFORMATION
  Report Type: Spontaneous
  Country: MX (occurrence: MX)
  Receive Date: 20140220
  Receipt Date: 20140220
  Transmission Date: 20141002
  Serious: Yes (Other)
  Sender: FDA-Public Use
  Company Number: PHHY2014MX019922

PATIENT
  Age: 67 Year
  Sex: Female

DRUGS (4)
  1. ONBREZ [Suspect]
     Indication: ASTHMA
     Dosage: 150 UG, QD
     Route: 055
     Dates: start: 201311, end: 201401
  2. ONBREZ [Suspect]
     Indication: OFF LABEL USE
  3. COMBIVENT [Concomitant]
     Indication: ASTHMA
     Dosage: (1 OR 2) UNK, DAILY
     Dates: start: 2011
  4. ALVESCO [Concomitant]
     Indication: ASTHMA
     Dosage: 1 UKN, DAILY
     Dates: start: 201311

REACTIONS (2)
  - Blood pressure increased [Recovered/Resolved]
  - Headache [Recovered/Resolved]
